FAERS Safety Report 12559862 (Version 1)
Quarter: 2016Q3

REPORT INFORMATION
  Report Type: Spontaneous
  Country: CN (occurrence: CN)
  Receive Date: 20160715
  Receipt Date: 20160715
  Transmission Date: 20161109
  Serious: Yes (Other)
  Sender: FDA-Public Use
  Company Number: CN-PFIZER INC-2016342466

PATIENT
  Age: 80 Year
  Sex: Male
  Weight: 71.5 kg

DRUGS (2)
  1. SOLU-MEDROL [Suspect]
     Active Substance: METHYLPREDNISOLONE SODIUM SUCCINATE
     Indication: CHRONIC OBSTRUCTIVE PULMONARY DISEASE
     Dosage: 40 MG, 1X/DAY
     Route: 041
     Dates: start: 20160113, end: 20160127
  2. FA DUO LIN [Suspect]
     Active Substance: PAZUFLOXACIN MESILATE
     Indication: ARTHRITIS INFECTIVE
     Dosage: 0.3 G, 2X/DAY
     Route: 041
     Dates: start: 20160113, end: 20160127

REACTIONS (2)
  - Logorrhoea [Recovering/Resolving]
  - Delirium [Recovering/Resolving]

NARRATIVE: CASE EVENT DATE: 20160127
